FAERS Safety Report 11709683 (Version 2)
Quarter: 2015Q4

REPORT INFORMATION
  Report Type: Spontaneous
  Country: US (occurrence: US)
  Receive Date: 20151104
  Receipt Date: 20151110
  Transmission Date: 20160304
  Serious: No
  Sender: FDA-Public Use
  Company Number: US-ELI_LILLY_AND_COMPANY-US201109002544

PATIENT
  Sex: Female

DRUGS (13)
  1. FORTEO [Suspect]
     Active Substance: TERIPARATIDE
     Indication: OSTEOPOROSIS
     Dosage: 20 UG, QD
     Dates: start: 2005, end: 2005
  2. FORTEO [Suspect]
     Active Substance: TERIPARATIDE
     Dosage: 20 UG, QD
     Dates: start: 20110528
  3. FORTEO [Suspect]
     Active Substance: TERIPARATIDE
     Dosage: 20 UG, QD
  4. WARFARIN [Concomitant]
     Active Substance: WARFARIN
     Dosage: 2.5 MG, 3/W
  5. HYDROCODONE [Concomitant]
     Active Substance: HYDROCODONE
     Dosage: 0.5 DF, PRN
  6. ADVAIR HFA [Concomitant]
     Active Substance: FLUTICASONE PROPIONATE\SALMETEROL XINAFOATE
  7. SYNTHROID [Concomitant]
     Active Substance: LEVOTHYROXINE SODIUM
     Dosage: 112 UG, QD
  8. METOPROLOL [Concomitant]
     Active Substance: METOPROLOL
     Dosage: 25 MG, BID
  9. VITAMIN D [Concomitant]
     Active Substance: CHOLECALCIFEROL
     Dosage: 1000 IU, BID
  10. MICARDIS [Concomitant]
     Active Substance: TELMISARTAN
     Indication: BLOOD PRESSURE MEASUREMENT
     Dosage: 40 MG, EACH EVENING
  11. ACIPHEX [Concomitant]
     Active Substance: RABEPRAZOLE SODIUM
     Dosage: 20 MG, UNK
  12. FLEXERIL [Concomitant]
     Active Substance: CYCLOBENZAPRINE HYDROCHLORIDE
     Indication: INSOMNIA
  13. WARFARIN [Concomitant]
     Active Substance: WARFARIN
     Dosage: 5 MG, 4/W

REACTIONS (17)
  - Stress fracture [Unknown]
  - Spinal column stenosis [Unknown]
  - Bone pain [Recovered/Resolved]
  - Fear [Not Recovered/Not Resolved]
  - Fatigue [Unknown]
  - Injury [Unknown]
  - Arthralgia [Not Recovered/Not Resolved]
  - Pain in extremity [Not Recovered/Not Resolved]
  - Sleep disorder due to a general medical condition [Unknown]
  - Dizziness [Unknown]
  - Road traffic accident [Unknown]
  - Rib fracture [Recovered/Resolved]
  - Bone pain [Not Recovered/Not Resolved]
  - Visual impairment [Unknown]
  - Bone disorder [Unknown]
  - Back pain [Unknown]
  - Insomnia [Unknown]

NARRATIVE: CASE EVENT DATE: 2005
